FAERS Safety Report 6539966-2 (Version None)
Quarter: 2010Q1

REPORT INFORMATION
  Report Type: 
  Country: None (occurrence: None)
  Receive Date: 20100115
  Receipt Date: 20100105
  Transmission Date: 20100710
  Serious: Yes (Hospitalization)
  Sender: FDA-Public Use
  Company Number: PHHO2010FR00493

PATIENT
  Sex: Male
  Weight: 98 kg

DRUGS (2)
  1. AEB071 AEB+GELCAP [Suspect]
     Indication: RENAL TRANSPLANT
     Dosage: 600 MG PER DAY
     Route: 048
  2. CERTICAN [Suspect]
     Indication: RENAL TRANSPLANT
     Dosage: 4 MG PER DAY
     Route: 048

REACTIONS (3)
  - ABDOMINAL CAVITY DRAINAGE [None]
  - ABDOMINAL PAIN [None]
  - LYMPHATIC FISTULA [None]
